FAERS Safety Report 8006907-0 (Version None)
Quarter: 2011Q4

REPORT INFORMATION
  Report Type: 
  Country: None (occurrence: None)
  Receive Date: 20111227
  Receipt Date: 20111215
  Transmission Date: 20120403
  Serious: Yes (Hospitalization, Other)
  Sender: FDA-Public Use
  Company Number: US-BAYER-2011-006798

PATIENT
  Sex: Female

DRUGS (8)
  1. FIORICET [Concomitant]
  2. ZANTAC [Concomitant]
  3. LABATOLOL [Concomitant]
  4. HUMULIN N [Concomitant]
  5. YASMIN [Suspect]
     Indication: ORAL CONTRACEPTION
     Dosage: UNK
     Dates: start: 20011101, end: 20020101
  6. SYNTHROID [Concomitant]
     Indication: HYPOTHYROIDISM
     Dosage: UNK
     Route: 048
     Dates: start: 19890101
  7. HUMULIN R [Concomitant]
  8. PHENERGAN [Concomitant]

REACTIONS (7)
  - FEAR [None]
  - CHOLECYSTITIS CHRONIC [None]
  - INJURY [None]
  - PAIN [None]
  - EMOTIONAL DISTRESS [None]
  - GALLBLADDER DISORDER [None]
  - ANXIETY [None]
